FAERS Safety Report 9277980 (Version 1)
Quarter: 2013Q2

REPORT INFORMATION
  Report Type: Spontaneous
  Country: JP (occurrence: JP)
  Receive Date: 20130508
  Receipt Date: 20130508
  Transmission Date: 20140414
  Serious: Yes (Hospitalization)
  Sender: FDA-Public Use
  Company Number: JP-OTSUKA-JP-2013-11214

PATIENT
  Age: 78 Year
  Sex: Female

DRUGS (2)
  1. SAMSCA [Suspect]
     Dosage: 15 MG MILLIGRAM(S), QD
     Route: 048
     Dates: start: 20130222, end: 20130425
  2. SAMSCA [Suspect]
     Dosage: 15 MG MILLIGRAM(S), QD
     Route: 048
     Dates: start: 20130427

REACTIONS (1)
  - Liver disorder [Recovered/Resolved]
